FAERS Safety Report 8942985 (Version 1)
Quarter: 2012Q4

REPORT INFORMATION
  Report Type: 
  Country: BR (occurrence: BR)
  Receive Date: 20121204
  Receipt Date: 20121204
  Transmission Date: 20130627
  Serious: Yes (Hospitalization, Other)
  Sender: FDA-Public Use
  Company Number: BR-PFIZER INC-2012300509

PATIENT
  Age: 60 Year
  Sex: Female
  Weight: 63 kg

DRUGS (5)
  1. LIPITOR [Suspect]
     Indication: HIGH CHOLESTEROL
     Dosage: 20 mg (one tablet), 1x/day
     Route: 048
     Dates: start: 2008
  2. ARTRODAR [Concomitant]
     Indication: ARTHROSIS
     Dosage: UNK
  3. ATACAND [Concomitant]
     Indication: HYPERTENSION
     Dosage: UNK
  4. EUTHYROX [Concomitant]
     Indication: HYPOTHYROIDISM
     Dosage: UNK
  5. DUPHASTON [Concomitant]
     Indication: HORMONE REPLACEMENT THERAPY
     Dosage: UNK

REACTIONS (2)
  - Acute sinusitis [Unknown]
  - Osteoarthritis [Recovering/Resolving]
